FAERS Safety Report 8140883-5 (Version None)
Quarter: 2012Q1

REPORT INFORMATION
  Report Type: 
  Country: None (occurrence: None)
  Receive Date: 20120216
  Receipt Date: 20120206
  Transmission Date: 20120608
  Serious: No
  Sender: FDA-Public Use
  Company Number: US-PFIZER INC-2011309589

PATIENT
  Sex: Female
  Weight: 50.794 kg

DRUGS (8)
  1. PLAVIX [Concomitant]
     Dosage: 75 MG, DAILY
  2. LIPITOR [Concomitant]
     Dosage: 80 MG, DAILY
  3. KLONOPIN [Concomitant]
     Indication: SLEEP DISORDER
     Dosage: 0.5 MG, DAILY
  4. OMEPRAZOLE [Concomitant]
     Indication: HYPERCHLORHYDRIA
     Dosage: 20 MG, DAILY
  5. THERMACARE LOWER BACK + HIP [Suspect]
     Indication: BACK PAIN
     Dosage: UNK
  6. LEVOTHYROXINE [Concomitant]
     Indication: HYPOTHYROIDISM
     Dosage: 0.05 UG, DAILY
  7. LISINOPRIL [Concomitant]
     Indication: HYPERTENSION
     Dosage: 5 MG, DAILY
  8. FISH OIL [Concomitant]

REACTIONS (1)
  - DEVICE INEFFECTIVE [None]
